FAERS Safety Report 5102414-3 (Version None)
Quarter: 2006Q3

REPORT INFORMATION
  Report Type: 
  Country: None (occurrence: None)
  Receive Date: 20060912
  Receipt Date: 20060907
  Transmission Date: 20061208
  Serious: Yes (Hospitalization)
  Sender: FDA-Public Use
  Company Number: GB-AVENTIS-200619316GDDC

PATIENT
  Age: 61 Year
  Sex: Male

DRUGS (8)
  1. DAONIL [Suspect]
     Indication: DIABETES MELLITUS
     Route: 048
     Dates: start: 20051015
  2. PANALDINE [Suspect]
     Indication: CEREBRAL INFARCTION
     Route: 048
     Dates: start: 20060704, end: 20060808
  3. ADALAT [Suspect]
     Indication: HYPERTENSION
     Route: 048
     Dates: start: 20051015
  4. GLUCOBAY [Suspect]
     Indication: DIABETES MELLITUS
     Route: 048
     Dates: start: 20051015
  5. CHINESE MEDICINE NOS [Concomitant]
  6. 8-HOUR BAYER [Concomitant]
  7. HALCION [Concomitant]
  8. ALINAMIN [Concomitant]

REACTIONS (4)
  - AGRANULOCYTOSIS [None]
  - GRANULOCYTOPENIA [None]
  - HEADACHE [None]
  - PYREXIA [None]
